FAERS Safety Report 8273752-0 (Version None)
Quarter: 2012Q2

REPORT INFORMATION
  Report Type: 
  Country: None (occurrence: None)
  Receive Date: 20120411
  Receipt Date: 20120403
  Transmission Date: 20120825
  Serious: Yes (Other)
  Sender: FDA-Public Use
  Company Number: US-BAYER-2012-033438

PATIENT
  Sex: Female

DRUGS (2)
  1. DROSPIRENONE AND ETHINYL ESTRADIOL [Suspect]
     Dosage: UNK
  2. YASMIN [Suspect]
     Dosage: UNK

REACTIONS (7)
  - PAIN [None]
  - GENERAL PHYSICAL HEALTH DETERIORATION [None]
  - INJURY [None]
  - ANHEDONIA [None]
  - EMOTIONAL DISTRESS [None]
  - ANXIETY [None]
  - GALLBLADDER INJURY [None]
